FAERS Safety Report 19092040 (Version 1)
Quarter: 2021Q2

REPORT INFORMATION
  Report Type: Spontaneous
  Country: AR (occurrence: AR)
  Receive Date: 20210405
  Receipt Date: 20210405
  Transmission Date: 20210717
  Serious: Yes (Hospitalization, Other)
  Sender: FDA-Public Use
  Company Number: AR-MICRO LABS LIMITED-ML2021-00953

PATIENT
  Age: 5 Year
  Sex: Male

DRUGS (8)
  1. MEPREDNISONE [Concomitant]
     Active Substance: MEPREDNISONE
     Indication: NEPHROTIC SYNDROME
  2. ALBUMIN [Concomitant]
     Active Substance: ALBUMIN HUMAN
     Indication: GENERALISED OEDEMA
     Route: 042
  3. CLINDAMYCIN. [Suspect]
     Active Substance: CLINDAMYCIN
  4. MEROPENEM. [Suspect]
     Active Substance: MEROPENEM
  5. TRIMETHOPRIM?SULFAMETHOXAZOLE [Suspect]
     Active Substance: SULFAMETHOXAZOLE\TRIMETHOPRIM
     Indication: PROPHYLAXIS
  6. VANCOMYCIN [Suspect]
     Active Substance: VANCOMYCIN
  7. AMIKACIN. [Suspect]
     Active Substance: AMIKACIN
  8. MYCOPHENOLATE MOFETIL. [Concomitant]
     Active Substance: MYCOPHENOLATE MOFETIL
     Indication: NEPHROTIC SYNDROME

REACTIONS (1)
  - Urinary tract infection fungal [Recovering/Resolving]
